FAERS Safety Report 9175183 (Version 6)
Quarter: 2013Q4

REPORT INFORMATION
  Report Type: Report from Study
  Country: JP (occurrence: JP)
  Receive Date: 20130320
  Receipt Date: 20131023
  Transmission Date: 20140711
  Serious: Yes (Hospitalization, Other)
  Sender: FDA-Public Use
  Company Number: JP-BRISTOL-MYERS SQUIBB COMPANY-17472945

PATIENT
  Age: 67 Year
  Sex: Male

DRUGS (1)
  1. DASATINIB [Suspect]
     Indication: CHRONIC MYELOID LEUKAEMIA
     Dosage: 14DEC2007-14SEP2012(100MG;ORAL)?RESTARTED ON 15SEP2012 (80MG;ORAL)
     Route: 048
     Dates: start: 20071214

REACTIONS (4)
  - Altered state of consciousness [Recovered/Resolved]
  - Pleural effusion [Recovered/Resolved]
  - Anaemia [Recovered/Resolved]
  - Subdural haematoma [Recovered/Resolved]
